FAERS Safety Report 7244100-X (Version None)
Quarter: 2010Q4

REPORT INFORMATION
  Report Type: 
  Country: None (occurrence: None)
  Receive Date: 20101130
  Receipt Date: 20090817
  Transmission Date: 20110411
  Serious: Yes (Hospitalization, Other)
  Sender: FDA-Public Use
  Company Number: 2009SP021058

PATIENT
  Age: 43 Year
  Sex: Female
  Weight: 95.709 kg

DRUGS (10)
  1. NUVARING [Suspect]
     Indication: CONTRACEPTION
     Dates: start: 20070501, end: 20070701
  2. NUVARING [Suspect]
     Indication: PREMENSTRUAL SYNDROME
     Dates: start: 20070501, end: 20070701
  3. NUVARING [Suspect]
     Indication: CONTRACEPTION
     Dates: start: 20030101
  4. NUVARING [Suspect]
     Indication: PREMENSTRUAL SYNDROME
     Dates: start: 20030101
  5. BENADRYL [Concomitant]
  6. TYLENOL W/ CODEINE NO. 3 [Concomitant]
  7. ALEVE [Concomitant]
  8. SKELAXIN [Concomitant]
  9. IMITREX [Concomitant]
  10. AMBIEN [Concomitant]

REACTIONS (6)
  - ATRIAL THROMBOSIS [None]
  - BILIARY DILATATION [None]
  - DEEP VEIN THROMBOSIS [None]
  - OCCULT BLOOD POSITIVE [None]
  - PULMONARY EMBOLISM [None]
  - VENA CAVA THROMBOSIS [None]
